FAERS Safety Report 11311049 (Version 2)
Quarter: 2015Q3

REPORT INFORMATION
  Report Type: Spontaneous
  Country: US (occurrence: US)
  Receive Date: 20150727
  Receipt Date: 20150906
  Transmission Date: 20151125
  Serious: Yes (Other)
  Sender: FDA-Public Use
  Company Number: US-AMGEN-USASP2015072889

PATIENT
  Age: 78 Year
  Sex: Female
  Weight: 90.7 kg

DRUGS (1)
  1. PROLIA [Suspect]
     Active Substance: DENOSUMAB
     Indication: PRODUCT USED FOR UNKNOWN INDICATION
     Dosage: UNK
     Route: 058
     Dates: start: 20150625

REACTIONS (5)
  - Myocardial infarction [Unknown]
  - Alopecia [Unknown]
  - Partial seizures [Unknown]
  - Muscle spasms [Unknown]
  - Limb discomfort [Unknown]

NARRATIVE: CASE EVENT DATE: 2015
